FAERS Safety Report 11876880 (Version 1)
Quarter: 2015Q4

REPORT INFORMATION
  Report Type: Report from Study
  Country: BR (occurrence: BR)
  Receive Date: 20151229
  Receipt Date: 20151229
  Transmission Date: 20160305
  Serious: Yes (Other)
  Sender: FDA-Public Use
  Company Number: BR-ABBVIE-15K-020-1362732-00

PATIENT
  Age: 68 Year
  Sex: Female
  Weight: 68 kg

DRUGS (8)
  1. VOLTAREN [Suspect]
     Active Substance: DICLOFENAC SODIUM
     Indication: LUNG INFECTION
     Route: 065
  2. HUMIRA [Suspect]
     Active Substance: ADALIMUMAB
     Route: 058
     Dates: start: 2015
  3. HUMIRA [Suspect]
     Active Substance: ADALIMUMAB
     Route: 058
     Dates: start: 20150730
  4. METHOTREXATE [Concomitant]
     Active Substance: METHOTREXATE
     Indication: RHEUMATOID ARTHRITIS
     Route: 048
  5. DIOVAN [Concomitant]
     Active Substance: VALSARTAN
     Indication: BLOOD PRESSURE ABNORMAL
     Route: 048
     Dates: start: 2011
  6. PREDSIM [Concomitant]
     Active Substance: PREDNISOLONE
     Indication: PAIN
     Dosage: DAILY OR EACH 12 HOURS
     Route: 048
  7. ROXFLAN [Concomitant]
     Active Substance: AMLODIPINE BESYLATE
     Indication: BLOOD PRESSURE ABNORMAL
     Route: 048
     Dates: start: 2011
  8. HUMIRA [Suspect]
     Active Substance: ADALIMUMAB
     Indication: RHEUMATOID ARTHRITIS
     Route: 058
     Dates: start: 20140401

REACTIONS (10)
  - Allergic respiratory symptom [Recovered/Resolved]
  - Influenza [Recovering/Resolving]
  - Influenza [Recovered/Resolved]
  - Sudden visual loss [Recovered/Resolved]
  - Secretion discharge [Unknown]
  - Malaise [Unknown]
  - Drug hypersensitivity [Recovered/Resolved]
  - Lung infection [Recovered/Resolved]
  - Syncope [Recovered/Resolved]
  - Dyspnoea [Recovered/Resolved]

NARRATIVE: CASE EVENT DATE: 20150225
